FAERS Safety Report 8818465 (Version 1)
Quarter: 2012Q4

REPORT INFORMATION
  Report Type: 
  Country: US (occurrence: US)
  Receive Date: 20121001
  Receipt Date: 20121001
  Transmission Date: 20130627
  Serious: Yes (Hospitalization)
  Sender: FDA-Public Use
  Company Number: US-ELI_LILLY_AND_COMPANY-US201008005074

PATIENT
  Age: 58 None
  Sex: Female

DRUGS (14)
  1. FORTEO [Suspect]
     Indication: OSTEOPOROSIS
     Dosage: 20 ug, daily (1/D)
  2. FORTEO [Suspect]
     Dosage: 20 ug, daily (1/D)
     Dates: start: 201008, end: 20120911
  3. LEVAQUIN [Concomitant]
  4. AMLODIPINE [Concomitant]
     Indication: BLOOD PRESSURE ABNORMAL
  5. CALCIUM WITH VITAMIN D [Concomitant]
     Dosage: UNK
  6. GLUCOSAMINE [Concomitant]
     Dosage: UNK
  7. MULTIVITAMIN [Concomitant]
     Dosage: UNK
  8. PROTONIX [Concomitant]
     Dosage: UNK
  9. OXYBUTYNIN [Concomitant]
  10. CELEBREX [Concomitant]
  11. MORPHINE [Concomitant]
     Dosage: UNK, qod
     Route: 062
  12. TRAZODONE [Concomitant]
  13. TRAMADOL [Concomitant]
  14. TYLENOL                                 /SCH/ [Concomitant]
     Dosage: UNK, bid

REACTIONS (16)
  - Chest pain [Recovered/Resolved]
  - Thoracic vertebral fracture [Recovered/Resolved]
  - Bone pain [Unknown]
  - Musculoskeletal chest pain [Unknown]
  - Pain in extremity [Unknown]
  - Myalgia [Unknown]
  - Arthralgia [Unknown]
  - Incorrect drug administration duration [Recovered/Resolved]
  - Pain [Unknown]
  - Movement disorder [Unknown]
  - Pain in extremity [Unknown]
  - Spinal pain [Unknown]
  - Pyrexia [Unknown]
  - Chills [Unknown]
  - Drug dose omission [Recovered/Resolved]
  - Cough [Unknown]
